FAERS Safety Report 14317372 (Version 1)
Quarter: 2017Q4

REPORT INFORMATION
  Report Type: Report from Study
  Country: US (occurrence: US)
  Receive Date: 20171222
  Receipt Date: 20171222
  Transmission Date: 20180321
  Serious: Yes (Death, Other)
  Sender: FDA-Public Use
  Company Number: US-ROCHE-1546479

PATIENT
  Age: 60 Year
  Sex: Male
  Weight: 60 kg

DRUGS (9)
  1. ONDANSETRON [Concomitant]
     Active Substance: ONDANSETRON
  2. ENSURE [Concomitant]
     Active Substance: AMINO ACIDS\DEXTROSE\ELECTROLYTES NOS\SOYBEAN OIL\VITAMINS
  3. SUTENT [Concomitant]
     Active Substance: SUNITINIB MALATE
     Route: 065
  4. COMPRO [Concomitant]
     Active Substance: PROCHLORPERAZINE
     Route: 065
  5. ALTEPLASE. [Suspect]
     Active Substance: ALTEPLASE
     Indication: VENOUS THROMBOSIS
     Route: 065
     Dates: start: 20100511
  6. WARFARIN [Concomitant]
     Active Substance: WARFARIN
  7. RELISTOR [Concomitant]
     Active Substance: METHYLNALTREXONE BROMIDE
     Route: 065
  8. MIRTAZAPINE. [Concomitant]
     Active Substance: MIRTAZAPINE
  9. FENTANYL. [Concomitant]
     Active Substance: FENTANYL

REACTIONS (2)
  - Renal cancer [Fatal]
  - Pyelonephritis [Unknown]
